FAERS Safety Report 13029707 (Version 4)
Quarter: 2017Q1

REPORT INFORMATION
  Report Type: Report from Study
  Country: FR (occurrence: FR)
  Receive Date: 20161215
  Receipt Date: 20170125
  Transmission Date: 20170428
  Serious: Yes (Hospitalization)
  Sender: FDA-Public Use
  Company Number: FR-ROCHE-1859309

PATIENT
  Age: 75 Year
  Sex: Female
  Weight: 53.5 kg

DRUGS (24)
  1. BECLOMETHASONE DIPROPIONATE [Concomitant]
     Active Substance: BECLOMETHASONE DIPROPIONATE
     Indication: COUGH
     Route: 065
     Dates: start: 20160227
  2. ATEZOLIZUMAB [Suspect]
     Active Substance: ATEZOLIZUMAB
     Indication: BLADDER TRANSITIONAL CELL CARCINOMA
     Dosage: MOST RECENT DOSE 1200 MG ON 22/APR/2016
     Route: 042
     Dates: start: 20150907
  3. SERESTA [Concomitant]
     Active Substance: OXAZEPAM
     Indication: INSOMNIA
     Route: 048
  4. KALEORID [Concomitant]
     Active Substance: POTASSIUM CHLORIDE
     Indication: HYPOKALAEMIA
     Dosage: UNIT
     Route: 048
     Dates: start: 20160502
  5. ACUPAN [Concomitant]
     Active Substance: NEFOPAM HYDROCHLORIDE
     Indication: FLATULENCE
     Route: 030
     Dates: start: 20151005
  6. LAMALINE [Concomitant]
     Active Substance: ACETAMINOPHEN\CAFFEINE\OPIUM
     Indication: OSTEOARTHRITIS
     Dosage: DOSE: 1 CAPSULE
     Route: 048
     Dates: start: 20160108
  7. PARACETAMOL [Concomitant]
     Active Substance: ACETAMINOPHEN
     Indication: HEADACHE
     Dosage: DOSE: 1 TABLET
     Route: 048
     Dates: start: 20160219
  8. METEOSPASMYL [Concomitant]
     Active Substance: ALVERINE CITRATE\DIMETHICONE
     Indication: FLATULENCE
     Route: 048
  9. IXPRIM [Concomitant]
     Active Substance: ACETAMINOPHEN\TRAMADOL HYDROCHLORIDE
     Indication: HEADACHE
     Dosage: DOSE: 1 TABLET
     Route: 048
     Dates: start: 20160219
  10. VOGALENE [Concomitant]
     Active Substance: METOPIMAZINE
     Indication: NAUSEA
     Dosage: DOSE: 1 TABLET
     Route: 065
     Dates: start: 201601, end: 201602
  11. XANAX [Concomitant]
     Active Substance: ALPRAZOLAM
     Indication: ANXIETY
     Route: 048
     Dates: start: 20150906
  12. SMECTALIA [Concomitant]
     Indication: DIARRHOEA
     Route: 048
     Dates: start: 20160502
  13. SPIFEN [Concomitant]
     Active Substance: IBUPROFEN
     Indication: BACK PAIN
     Route: 048
     Dates: start: 20150907
  14. MICARDIS [Concomitant]
     Active Substance: TELMISARTAN
     Indication: HYPERTENSION
     Route: 048
  15. CALTRATE [Concomitant]
     Active Substance: CALCIUM CARBONATE
     Indication: OSTEOPOROSIS
     Route: 048
  16. SPASFON (FRANCE) [Concomitant]
     Active Substance: PHLOROGLUCINOL
     Indication: FLATULENCE
     Dosage: DOSE: 2 CAPSULE
     Route: 048
     Dates: start: 20150928
  17. DAFALGAN CODEINE [Concomitant]
     Active Substance: ACETAMINOPHEN\CODEINE PHOSPHATE
     Indication: COUGH
     Dosage: DOSE: 1 TABLET
     Route: 048
     Dates: start: 20160129
  18. IMODIUM [Concomitant]
     Active Substance: LOPERAMIDE HYDROCHLORIDE
     Indication: DIARRHOEA
     Route: 048
     Dates: start: 20151210
  19. BEDELIX [Concomitant]
     Indication: FLATULENCE
     Route: 048
  20. LAMALINE [Concomitant]
     Active Substance: ACETAMINOPHEN\CAFFEINE\OPIUM
     Route: 048
     Dates: start: 20160630
  21. LEXOMIL [Concomitant]
     Active Substance: BROMAZEPAM
     Indication: ANXIETY
     Dosage: UNIT
     Route: 048
     Dates: start: 20160502
  22. IXPRIM [Concomitant]
     Active Substance: ACETAMINOPHEN\TRAMADOL HYDROCHLORIDE
     Indication: FLATULENCE
     Dosage: DOSE: 2 CAPSULE
     Route: 048
     Dates: start: 20150928
  23. DEBRIDAT [Concomitant]
     Active Substance: TRIMEBUTINE MALEATE
     Indication: FLATULENCE
     Route: 048
     Dates: start: 20151005
  24. CEFPODOXIME [Concomitant]
     Active Substance: CEFPODOXIME
     Indication: COUGH
     Route: 048
     Dates: start: 20160227

REACTIONS (1)
  - Fatigue [Recovered/Resolved]

NARRATIVE: CASE EVENT DATE: 20160721
